FAERS Safety Report 10211658 (Version 1)
Quarter: 2014Q2

REPORT INFORMATION
  Report Type: Spontaneous
  Country: US (occurrence: US)
  Receive Date: 20140602
  Receipt Date: 20140602
  Transmission Date: 20141212
  Serious: No
  Sender: FDA-Public Use
  Company Number: US-PFIZER INC-2014148040

PATIENT
  Age: 71 Year
  Sex: Female

DRUGS (1)
  1. ADVIL [Suspect]
     Indication: ARTHRALGIA
     Dosage: UNK, 2 TIMES A DAY

REACTIONS (2)
  - Thermal burn [Unknown]
  - Diarrhoea [Unknown]
